FAERS Safety Report 7968967-2 (Version None)
Quarter: 2011Q4

REPORT INFORMATION
  Report Type: 
  Country: None (occurrence: None)
  Receive Date: 20111209
  Receipt Date: 20111205
  Transmission Date: 20120403
  Serious: No
  Sender: FDA-Public Use
  Company Number: US-B.I. PHARMACEUTICALS,INC./RIDGEFIELD-2011-BP-26427BP

PATIENT
  Sex: Female

DRUGS (6)
  1. PRADAXA [Suspect]
     Indication: ATRIAL FIBRILLATION
     Dosage: 300 MG
     Route: 048
     Dates: start: 20110601, end: 20110901
  2. MULTAQ [Concomitant]
     Indication: HYPERTENSION
  3. MULTAQ [Concomitant]
     Indication: ATRIAL FIBRILLATION
     Dosage: 200 MG
     Route: 048
     Dates: start: 20110101
  4. AZOR [Concomitant]
     Indication: HYPERTENSION
     Route: 048
     Dates: start: 20110101
  5. OMEPRAZOLE [Concomitant]
     Indication: HYPERSENSITIVITY
     Route: 048
  6. PRADAXA [Suspect]
     Dosage: 150 MG
     Route: 048
     Dates: start: 20110901, end: 20111201

REACTIONS (3)
  - PRURITUS [None]
  - ANAL PRURITUS [None]
  - BLOOD URINE PRESENT [None]
